FAERS Safety Report 12124044 (Version 1)
Quarter: 2016Q1

REPORT INFORMATION
  Report Type: Spontaneous
  Country: US (occurrence: US)
  Receive Date: 20160229
  Receipt Date: 20160229
  Transmission Date: 20160526
  Serious: Yes (Hospitalization, Other)
  Sender: FDA-Public Use
  Company Number: US-PFIZER INC-2016108338

PATIENT
  Age: 59 Year
  Sex: Female

DRUGS (6)
  1. AMBRISENTAN [Suspect]
     Active Substance: AMBRISENTAN
     Dosage: 10 MG, 1X/DAY
     Dates: start: 20140626
  2. AMBRISENTAN [Suspect]
     Active Substance: AMBRISENTAN
     Dosage: 5 MG, 1X/DAY
  3. VELETRI [Suspect]
     Active Substance: EPOPROSTENOL
     Dosage: UNK
  4. REVATIO [Suspect]
     Active Substance: SILDENAFIL CITRATE
     Dosage: UNK
  5. ORENITRAM [Suspect]
     Active Substance: TREPROSTINIL
     Dosage: UNK
     Route: 048
  6. AMBRISENTAN [Suspect]
     Active Substance: AMBRISENTAN
     Dosage: UNK UNK, 1X/DAY

REACTIONS (4)
  - Headache [Not Recovered/Not Resolved]
  - Nausea [Recovering/Resolving]
  - Infusion site erythema [Recovered/Resolved]
  - Diarrhoea [Recovering/Resolving]

NARRATIVE: CASE EVENT DATE: 20151130
